FAERS Safety Report 9373695 (Version 1)
Quarter: 2013Q2

REPORT INFORMATION
  Report Type: Spontaneous
  Country: US (occurrence: US)
  Receive Date: 20130627
  Receipt Date: 20130627
  Transmission Date: 20140414
  Serious: Yes (Death, Hospitalization, Other)
  Sender: FDA-Public Use
  Company Number: US-BAXTER-2013BAX022973

PATIENT
  Age: 100 Year
  Sex: Male

DRUGS (1)
  1. DIANEAL LOW CALCIUM [Suspect]
     Indication: PERITONEAL DIALYSIS
     Route: 033
     Dates: end: 20130612

REACTIONS (3)
  - Gastrointestinal haemorrhage [Fatal]
  - Benign gastrointestinal neoplasm [Recovering/Resolving]
  - Condition aggravated [Unknown]
